FAERS Safety Report 9988745 (Version 1)
Quarter: 2014Q1

REPORT INFORMATION
  Report Type: Spontaneous
  Country: US (occurrence: US)
  Receive Date: 20140310
  Receipt Date: 20140310
  Transmission Date: 20141002
  Serious: Yes (Other)
  Sender: FDA-Public Use
  Company Number: US-JNJCP-30000205099

PATIENT
  Sex: Female
  Weight: 50 kg

DRUGS (1)
  1. NEUTROGENA AGELESS INTENSIVES DEEP WRINKLE MOISTURE SPF20 [Suspect]
     Indication: SKIN WRINKLING
     Dosage: ONE PUMP ONCE PER DAY
     Route: 061
     Dates: end: 20140221

REACTIONS (1)
  - Dermatitis contact [Recovered/Resolved]
